FAERS Safety Report 6825363-9 (Version None)
Quarter: 2010Q3

REPORT INFORMATION
  Report Type: 
  Country: None (occurrence: None)
  Receive Date: 20100708
  Receipt Date: 20070123
  Transmission Date: 20110219
  Serious: Yes (Other)
  Sender: FDA-Public Use
  Company Number: US-PFIZER INC-2006147876

PATIENT
  Sex: Female
  Weight: 58.5 kg

DRUGS (3)
  1. CHANTIX [Suspect]
     Indication: SMOKING CESSATION THERAPY
     Route: 048
     Dates: start: 20061116
  2. THYROID TAB [Concomitant]
  3. FOSAMAX [Concomitant]

REACTIONS (4)
  - ABNORMAL DREAMS [None]
  - NAUSEA [None]
  - SLEEP DISORDER [None]
  - WEIGHT INCREASED [None]
